FAERS Safety Report 13834302 (Version 1)
Quarter: 2017Q3

REPORT INFORMATION
  Report Type: Spontaneous
  Country: FR (occurrence: FR)
  Receive Date: 20170804
  Receipt Date: 20170804
  Transmission Date: 20171127
  Serious: Yes (Other)
  Sender: FDA-Public Use
  Company Number: FR-SA-2017SA136372

PATIENT
  Age: 48 Year
  Sex: Male

DRUGS (12)
  1. LOVENOX [Suspect]
     Active Substance: ENOXAPARIN SODIUM
     Indication: THROMBOSIS PROPHYLAXIS
     Dosage: 4000 IU ANTI-XA / 0.4 ML , SOLUTION FOR INJECTION IN PRE-FILLED SYRINGE
     Route: 058
     Dates: start: 20170512, end: 20170527
  2. TANGANIL [Suspect]
     Active Substance: ACETYLLEUCINE
     Indication: VERTIGO
     Route: 048
     Dates: start: 20170518, end: 20170527
  3. ATORVASTATIN [Concomitant]
     Active Substance: ATORVASTATIN
     Route: 048
     Dates: start: 20170512
  4. BRILIQUE [Concomitant]
     Active Substance: TICAGRELOR
     Route: 048
     Dates: start: 20170512
  5. EZETROL [Concomitant]
     Active Substance: EZETIMIBE
     Route: 048
     Dates: start: 20170512
  6. COVERAM [Concomitant]
     Active Substance: AMLODIPINE\PERINDOPRIL
     Dosage: 10 MG/5 MG,
     Route: 048
  7. ATENOLOL. [Concomitant]
     Active Substance: ATENOLOL
     Dosage: FILM COATED DIVISIBLE TABLET
     Route: 048
     Dates: start: 20170513
  8. NICOPATCH [Concomitant]
     Active Substance: NICOTINE
     Dosage: NICOPATCH (NICOTINE) 21 MG/24H, TRANSDERMAL PATCH OF 52.5 MG / 30 CM2
     Route: 003
  9. PAROXETINE HYDROCHLORIDE. [Concomitant]
     Active Substance: PAROXETINE HYDROCHLORIDE
     Dosage: FILM COATED DIVISIBLE TABLET
     Route: 048
     Dates: start: 20170512
  10. NICARDIPINE [Suspect]
     Active Substance: NICARDIPINE
     Indication: HYPERTENSION
     Route: 042
     Dates: start: 20170517, end: 20170527
  11. ALPRAZOLAM. [Concomitant]
     Active Substance: ALPRAZOLAM
     Dosage: DIVISIBLE TABLET
     Route: 048
  12. ASPEGIC NOURRISSONS [Concomitant]
     Active Substance: ASPIRIN LYSINE
     Route: 048
     Dates: start: 20170512

REACTIONS (1)
  - Intracranial pressure increased [Recovering/Resolving]

NARRATIVE: CASE EVENT DATE: 20170526
